FAERS Safety Report 8691471 (Version 2)
Quarter: 2012Q4

REPORT INFORMATION
  Report Type: 
  Country: US (occurrence: US)
  Receive Date: 20120730
  Receipt Date: 20121005
  Transmission Date: 20130627
  Serious: Yes (Death)
  Sender: FDA-Public Use
  Company Number: US-PFIZER INC-2012181926

PATIENT
  Age: 70 Year
  Sex: Male

DRUGS (1)
  1. INLYTA [Suspect]
     Indication: RENAL CELL CARCINOMA
     Dosage: 5 mg, 2x/day
     Route: 048
     Dates: start: 20120629, end: 20120831

REACTIONS (6)
  - Disease progression [Fatal]
  - Renal cell carcinoma [Fatal]
  - Pain [Not Recovered/Not Resolved]
  - Confusional state [Not Recovered/Not Resolved]
  - Arthralgia [Not Recovered/Not Resolved]
  - Fatigue [Not Recovered/Not Resolved]
